FAERS Safety Report 23215967 (Version 1)
Quarter: 2023Q4

REPORT INFORMATION
  Report Type: Spontaneous
  Country: US (occurrence: US)
  Receive Date: 20231122
  Receipt Date: 20231122
  Transmission Date: 20240110
  Serious: No
  Sender: FDA-Public Use
  Company Number: US-ALKEM LABORATORIES LIMITED-US-ALKEM-2023-11036

PATIENT
  Age: 20 Year
  Sex: Female
  Weight: 22.2 kg

DRUGS (11)
  1. ISONIAZID [Suspect]
     Active Substance: ISONIAZID
     Indication: Evidence based treatment
     Dosage: UNK
     Route: 065
  2. ITRACONAZOLE [Suspect]
     Active Substance: ITRACONAZOLE
     Indication: Nosocomial infection
     Dosage: UNK
     Route: 065
  3. ITRACONAZOLE [Suspect]
     Active Substance: ITRACONAZOLE
     Indication: Fungal infection
  4. AZITHROMYCIN [Suspect]
     Active Substance: AZITHROMYCIN
     Indication: Evidence based treatment
     Dosage: UNK
     Route: 065
  5. RIFAMPIN [Suspect]
     Active Substance: RIFAMPIN
     Indication: Evidence based treatment
     Dosage: UNK
     Route: 065
  6. ETHAMBUTOL [Concomitant]
     Active Substance: ETHAMBUTOL HYDROCHLORIDE
     Indication: Evidence based treatment
     Dosage: UNK
     Route: 065
  7. LEVOFLOXACIN [Concomitant]
     Active Substance: LEVOFLOXACIN
     Indication: Evidence based treatment
     Dosage: UNK
     Route: 065
  8. PREDNISONE [Concomitant]
     Active Substance: PREDNISONE
     Indication: Disease complication
     Dosage: UNK
     Route: 065
  9. PREDNISONE [Concomitant]
     Active Substance: PREDNISONE
     Dosage: UNK (TAPERING DOSE)
     Route: 065
  10. PYRAZINAMIDE [Concomitant]
     Active Substance: PYRAZINAMIDE
     Indication: Evidence based treatment
     Dosage: UNK
     Route: 065
  11. PYRIDOXINE [Concomitant]
     Active Substance: PYRIDOXINE
     Indication: Evidence based treatment
     Dosage: UNK
     Route: 065

REACTIONS (1)
  - Drug level decreased [Unknown]
